FAERS Safety Report 17188146 (Version 1)
Quarter: 2019Q4

REPORT INFORMATION
  Report Type: Spontaneous
  Country: US (occurrence: US)
  Receive Date: 20191221
  Receipt Date: 20191221
  Transmission Date: 20200122
  Serious: No
  Sender: FDA-Public Use
  Company Number: US-009507513-1912USA005208

PATIENT
  Age: 52 Year
  Sex: Female

DRUGS (6)
  1. EVEROLIMUS. [Concomitant]
     Active Substance: EVEROLIMUS
     Indication: ANAPLASTIC THYROID CANCER
     Dosage: UNK
  2. KEYTRUDA [Suspect]
     Active Substance: PEMBROLIZUMAB
     Indication: THYROID CANCER METASTATIC
  3. EVEROLIMUS. [Concomitant]
     Active Substance: EVEROLIMUS
     Indication: THYROID CANCER METASTATIC
  4. LENVATINIB [Concomitant]
     Active Substance: LENVATINIB
     Indication: THYROID CANCER METASTATIC
  5. KEYTRUDA [Suspect]
     Active Substance: PEMBROLIZUMAB
     Indication: ANAPLASTIC THYROID CANCER
     Dosage: UNK
  6. LENVATINIB [Concomitant]
     Active Substance: LENVATINIB
     Indication: ANAPLASTIC THYROID CANCER
     Dosage: UNK

REACTIONS (1)
  - Off label use [Unknown]
